FAERS Safety Report 4769949-4 (Version None)
Quarter: 2005Q3

REPORT INFORMATION
  Report Type: 
  Country: None (occurrence: None)
  Receive Date: 20050915
  Receipt Date: 20050902
  Transmission Date: 20060218
  Serious: Yes (Other)
  Sender: FDA-Public Use
  Company Number: PHBS2005JP12898

PATIENT
  Age: 65 Year
  Sex: Female

DRUGS (3)
  1. DIOVAN [Suspect]
     Indication: HYPERTENSION
     Dosage: 80 MG, QD
     Route: 048
     Dates: start: 20050501, end: 20050901
  2. JUVELA NICOTINATE [Concomitant]
     Dosage: 400 MG, UNK
     Route: 048
     Dates: start: 20011101
  3. SATOSALBE [Concomitant]
     Dates: start: 20021101

REACTIONS (1)
  - PLATELET COUNT DECREASED [None]
